FAERS Safety Report 17352435 (Version 2)
Quarter: 2020Q2

REPORT INFORMATION
  Report Type: Report from Study
  Country: None (occurrence: US)
  Receive Date: 20200130
  Receipt Date: 20200505
  Transmission Date: 20200713
  Serious: Yes (Other)
  Sender: FDA-Public Use
  Company Number: US-ABBVIE-19K-163-3213480-00

PATIENT
  Sex: Female
  Weight: 78.09 kg

DRUGS (17)
  1. HUMIRA [Suspect]
     Active Substance: ADALIMUMAB
     Indication: RHEUMATOID ARTHRITIS
     Route: 058
     Dates: start: 2018, end: 20200312
  2. GLIMEPIRIDE. [Concomitant]
     Active Substance: GLIMEPIRIDE
     Indication: TYPE 2 DIABETES MELLITUS
  3. METFORMIN [Concomitant]
     Active Substance: METFORMIN HYDROCHLORIDE
     Indication: TYPE 2 DIABETES MELLITUS
  4. INFLUENZA VACCINE [Suspect]
     Active Substance: INFLUENZA VIRUS VACCINE
     Indication: PRODUCT USED FOR UNKNOWN INDICATION
     Route: 065
  5. METHOTREXATE. [Concomitant]
     Active Substance: METHOTREXATE
     Indication: PROPHYLAXIS
  6. HYDROXYZINE [Suspect]
     Active Substance: HYDROXYZINE HYDROCHLORIDE
     Indication: PRURITUS
     Route: 048
     Dates: start: 20200420
  7. MELOXICAM. [Concomitant]
     Active Substance: MELOXICAM
     Indication: PRODUCT USED FOR UNKNOWN INDICATION
  8. IPRATROPIUM [Concomitant]
     Active Substance: IPRATROPIUM
     Indication: PRODUCT USED FOR UNKNOWN INDICATION
  9. FLU SHOT [Suspect]
     Active Substance: INFLUENZA VIRUS VACCINE
     Indication: PRODUCT USED FOR UNKNOWN INDICATION
     Route: 050
     Dates: start: 20190920, end: 20190920
  10. FLUTICASONE. [Concomitant]
     Active Substance: FLUTICASONE
     Indication: PRODUCT USED FOR UNKNOWN INDICATION
     Route: 045
  11. MONTELUKAST [Concomitant]
     Active Substance: MONTELUKAST SODIUM
     Indication: ASTHMA
  12. VENTOLIN [Concomitant]
     Active Substance: ALBUTEROL SULFATE
     Indication: PRODUCT USED FOR UNKNOWN INDICATION
  13. PANTOPRAZOLE [Concomitant]
     Active Substance: PANTOPRAZOLE
     Indication: GASTROOESOPHAGEAL REFLUX DISEASE
  14. FLU SHOT [Suspect]
     Active Substance: INFLUENZA VIRUS VACCINE
     Route: 065
     Dates: start: 2019
  15. ACTIMINE [Concomitant]
     Indication: PRODUCT USED FOR UNKNOWN INDICATION
  16. FOLIC ACID. [Concomitant]
     Active Substance: FOLIC ACID
     Indication: PROPHYLAXIS
  17. VITAMIN D3 [Concomitant]
     Active Substance: CHOLECALCIFEROL
     Indication: HYPOVITAMINOSIS

REACTIONS (38)
  - Systemic lupus erythematosus [Not Recovered/Not Resolved]
  - Pruritus [Recovering/Resolving]
  - Skin induration [Recovering/Resolving]
  - Ocular icterus [Recovering/Resolving]
  - Scratch [Recovered/Resolved]
  - Weight increased [Unknown]
  - Product odour abnormal [Not Recovered/Not Resolved]
  - Vertigo [Recovering/Resolving]
  - Anger [Unknown]
  - Malaise [Recovering/Resolving]
  - Somnolence [Not Recovered/Not Resolved]
  - Fatigue [Not Recovered/Not Resolved]
  - Nasal congestion [Recovered/Resolved]
  - Impaired healing [Recovered/Resolved]
  - Foot fracture [Recovering/Resolving]
  - Pneumonia [Not Recovered/Not Resolved]
  - Eye pruritus [Unknown]
  - Crying [Unknown]
  - Urticaria [Recovering/Resolving]
  - Pain in extremity [Recovering/Resolving]
  - Cough [Recovered/Resolved]
  - Insomnia [Unknown]
  - Face injury [Recovered/Resolved]
  - Hair colour changes [Unknown]
  - Auditory disorder [Unknown]
  - Asthenia [Not Recovered/Not Resolved]
  - Mental disorder [Unknown]
  - Memory impairment [Unknown]
  - Erythema [Recovering/Resolving]
  - Alopecia [Not Recovered/Not Resolved]
  - Skin discolouration [Recovering/Resolving]
  - Musculoskeletal disorder [Recovering/Resolving]
  - Respiratory disorder [Recovered/Resolved]
  - Hyperaesthesia [Unknown]
  - Oropharyngeal pain [Not Recovered/Not Resolved]
  - Balance disorder [Recovering/Resolving]
  - Fear [Unknown]
  - Rhinorrhoea [Recovered/Resolved]

NARRATIVE: CASE EVENT DATE: 2019
